FAERS Safety Report 24890032 (Version 2)
Quarter: 2025Q1

REPORT INFORMATION
  Report Type: Report from Study
  Country: GT (occurrence: GT)
  Receive Date: 20250127
  Receipt Date: 20250213
  Transmission Date: 20250408
  Serious: Yes (Other)
  Sender: ABBVIE
  Company Number: GT-JNJFOC-20250162521

PATIENT
  Age: 68 Year
  Sex: Male
  Weight: 72 kg

DRUGS (1)
  1. IMBRUVICA [Suspect]
     Active Substance: IBRUTINIB
     Indication: Mantle cell lymphoma
     Route: 048
     Dates: start: 20211118

REACTIONS (6)
  - Accident [Unknown]
  - Craniofacial fracture [Unknown]
  - Infection [Unknown]
  - Face injury [Unknown]
  - Ocular discomfort [Unknown]
  - Eye injury [Unknown]

NARRATIVE: CASE EVENT DATE: 20250109
